FAERS Safety Report 15784940 (Version 1)
Quarter: 2019Q1

REPORT INFORMATION
  Report Type: Spontaneous
  Country: BR (occurrence: BR)
  Receive Date: 20190103
  Receipt Date: 20190103
  Transmission Date: 20190417
  Serious: Yes (Other)
  Sender: FDA-Public Use
  Company Number: BR-ABBVIE-19K-020-2610039-00

PATIENT
  Age: 50 Year
  Sex: Female

DRUGS (1)
  1. HUMIRA [Suspect]
     Active Substance: ADALIMUMAB
     Indication: RHEUMATOID ARTHRITIS
     Route: 058

REACTIONS (9)
  - Ischaemia [Unknown]
  - Malaise [Unknown]
  - Musculoskeletal disorder [Unknown]
  - Thyroid cancer [Unknown]
  - Myocarditis [Unknown]
  - Appendicitis [Unknown]
  - Pain [Unknown]
  - Depression [Unknown]
  - Arthropathy [Unknown]

NARRATIVE: CASE EVENT DATE: 2017
